FAERS Safety Report 21777098 (Version 1)
Quarter: 2022Q4

REPORT INFORMATION
  Report Type: Spontaneous
  Country: IT (occurrence: IT)
  Receive Date: 20221226
  Receipt Date: 20221226
  Transmission Date: 20230113
  Serious: Yes (Other)
  Sender: FDA-Public Use
  Company Number: IT-RECORDATI-2022006881

PATIENT

DRUGS (3)
  1. OSILODROSTAT [Suspect]
     Active Substance: OSILODROSTAT
     Indication: Pituitary-dependent Cushing^s syndrome
     Dosage: 2 MILLIGRAM, BID
  2. OSILODROSTAT [Suspect]
     Active Substance: OSILODROSTAT
     Dosage: 1 MILLIGRAM, QD
  3. DESMOPRESSIN [Concomitant]
     Active Substance: DESMOPRESSIN
     Indication: Diabetes insipidus

REACTIONS (1)
  - Adrenal insufficiency [Unknown]
